FAERS Safety Report 5054078-5 (Version None)
Quarter: 2006Q3

REPORT INFORMATION
  Report Type: 
  Country: None (occurrence: None)
  Receive Date: 20060718
  Receipt Date: 20060707
  Transmission Date: 20061208
  Serious: Yes (Hospitalization)
  Sender: FDA-Public Use
  Company Number: JP-JNJFOC-20060200270

PATIENT
  Sex: Female
  Weight: 50 kg

DRUGS (7)
  1. REMICADE [Suspect]
     Route: 042
  2. REMICADE [Suspect]
     Indication: RHEUMATOID ARTHRITIS
     Route: 042
  3. METHOTREXATE [Suspect]
     Indication: RHEUMATOID ARTHRITIS
     Route: 048
  4. SALAZOPYRIN [Suspect]
     Indication: RHEUMATOID ARTHRITIS
  5. RIMATIL [Suspect]
     Indication: RHEUMATOID ARTHRITIS
     Route: 048
  6. FOLAMIN [Concomitant]
     Indication: NASOPHARYNGITIS
     Route: 048
  7. FLOMOX [Concomitant]
     Indication: NASOPHARYNGITIS
     Route: 048

REACTIONS (1)
  - PNEUMOCYSTIS JIROVECI PNEUMONIA [None]
